FAERS Safety Report 6399399-9 (Version None)
Quarter: 2009Q4

REPORT INFORMATION
  Report Type: 
  Country: None (occurrence: None)
  Receive Date: 20091014
  Receipt Date: 20091005
  Transmission Date: 20100525
  Serious: Yes (Death, Hospitalization, Other)
  Sender: FDA-Public Use
  Company Number: US-AMGEN-KDL368009

PATIENT
  Age: 75 Year
  Sex: Female

DRUGS (5)
  1. PROCRIT [Suspect]
     Indication: ANAEMIA OF MALIGNANT DISEASE
     Dates: start: 20090901
  2. PROCRIT [Suspect]
     Indication: RENAL FAILURE CHRONIC
  3. DECADRON [Concomitant]
  4. LEVAQUIN [Concomitant]
  5. AMLODIPINE BESYLATE AND BENAZEPRIL HCL [Concomitant]

REACTIONS (5)
  - COMA [None]
  - DEATH [None]
  - DEHYDRATION [None]
  - HAEMOGLOBIN DECREASED [None]
  - HOSPITALISATION [None]
